FAERS Safety Report 4711844-0 (Version None)
Quarter: 2005Q3

REPORT INFORMATION
  Report Type: 
  Country: None (occurrence: None)
  Receive Date: 20050708
  Receipt Date: 20040818
  Transmission Date: 20060218
  Serious: Yes (Other)
  Sender: FDA-Public Use
  Company Number: US-2004-030845

PATIENT
  Age: 39 Year
  Sex: Female

DRUGS (2)
  1. ULTRAVIST 370 [Suspect]
     Indication: COMPUTERISED TOMOGRAM
     Dosage: 70 ML, 1 DOSE, INTRAVENOUS
     Route: 042
     Dates: start: 20040816, end: 20040816
  2. ANTI-ASTHMATICS [Concomitant]

REACTIONS (3)
  - DYSPNOEA [None]
  - HYPERVENTILATION [None]
  - PANIC REACTION [None]
